FAERS Safety Report 9358186 (Version 1)
Quarter: 2013Q2

REPORT INFORMATION
  Report Type: Spontaneous
  Country: US (occurrence: US)
  Receive Date: 20130620
  Receipt Date: 20130620
  Transmission Date: 20140414
  Serious: No
  Sender: FDA-Public Use
  Company Number: US-PFIZER INC-2013182523

PATIENT
  Age: 83 Year
  Sex: Male
  Weight: 73.02 kg

DRUGS (6)
  1. ACCURETIC [Suspect]
     Indication: HYPERTENSION
     Dosage: [QUINAPRIL 20MG]/[HYDROCHLOROTHIAZIDE 12.5MG], 2X/DAY
     Route: 048
     Dates: end: 20130613
  2. COREG [Concomitant]
     Dosage: UNK
  3. GLUCOPHAGE [Concomitant]
     Dosage: UNK
  4. LIPITOR [Concomitant]
     Dosage: UNK
  5. XANAX [Concomitant]
     Dosage: UNK
  6. LODINE [Concomitant]
     Dosage: UNK

REACTIONS (1)
  - Local swelling [Not Recovered/Not Resolved]
